FAERS Safety Report 20471212 (Version 1)
Quarter: 2022Q1

REPORT INFORMATION
  Report Type: Report from Study
  Country: US (occurrence: US)
  Receive Date: 20220214
  Receipt Date: 20220214
  Transmission Date: 20220423
  Serious: Yes (Hospitalization)
  Sender: FDA-Public Use
  Company Number: US-BAYER-2022A019027

PATIENT
  Sex: Female
  Weight: 52.6 kg

DRUGS (14)
  1. REGORAFENIB [Suspect]
     Active Substance: REGORAFENIB
     Indication: Squamous cell carcinoma of head and neck
     Dosage: 90 MG
     Route: 048
     Dates: start: 20210715, end: 20210804
  2. REGORAFENIB [Suspect]
     Active Substance: REGORAFENIB
     Indication: Squamous cell carcinoma of head and neck
     Dosage: 120 MG
     Route: 048
     Dates: start: 20211123, end: 20211201
  3. REGORAFENIB [Suspect]
     Active Substance: REGORAFENIB
     Indication: Squamous cell carcinoma of head and neck
     Dosage: 120 MG
     Route: 048
     Dates: start: 20211208, end: 20211228
  4. REGORAFENIB [Suspect]
     Active Substance: REGORAFENIB
     Indication: Squamous cell carcinoma of head and neck
     Dosage: 120 MG
     Route: 048
     Dates: start: 20210812, end: 20210819
  5. REGORAFENIB [Suspect]
     Active Substance: REGORAFENIB
     Indication: Squamous cell carcinoma of head and neck
     Dosage: 120 MG
     Route: 048
     Dates: start: 20210821, end: 20210901
  6. REGORAFENIB [Suspect]
     Active Substance: REGORAFENIB
     Indication: Squamous cell carcinoma of head and neck
     Dosage: 120 MG
     Route: 048
     Dates: start: 20210916, end: 20211006
  7. REGORAFENIB [Suspect]
     Active Substance: REGORAFENIB
     Indication: Squamous cell carcinoma of head and neck
     Dosage: 120 MG
     Route: 048
     Dates: start: 20211014, end: 20211019
  8. REGORAFENIB [Suspect]
     Active Substance: REGORAFENIB
     Indication: Squamous cell carcinoma of head and neck
     Dosage: 120 MG
     Route: 048
     Dates: start: 20211023, end: 20211103
  9. REGORAFENIB [Suspect]
     Active Substance: REGORAFENIB
     Indication: Squamous cell carcinoma of head and neck
     Dosage: 120 MG
     Route: 048
     Dates: start: 20211111, end: 20211121
  10. NIVOLUMAB [Suspect]
     Active Substance: NIVOLUMAB
     Indication: Squamous cell carcinoma of head and neck
     Dosage: 480 MG
     Route: 042
     Dates: start: 20210715, end: 20210715
  11. NIVOLUMAB [Suspect]
     Active Substance: NIVOLUMAB
     Indication: Squamous cell carcinoma of head and neck
     Dosage: 480 MG
     Route: 042
     Dates: start: 20210812, end: 20210812
  12. NIVOLUMAB [Suspect]
     Active Substance: NIVOLUMAB
     Indication: Squamous cell carcinoma of head and neck
     Dosage: 480 MG
     Route: 042
     Dates: start: 20210916, end: 20210916
  13. NIVOLUMAB [Suspect]
     Active Substance: NIVOLUMAB
     Indication: Squamous cell carcinoma of head and neck
     Dosage: 480 MG
     Route: 042
     Dates: start: 20011014, end: 20211014
  14. NIVOLUMAB [Suspect]
     Active Substance: NIVOLUMAB
     Indication: Squamous cell carcinoma of head and neck
     Dosage: 480 MG
     Route: 042
     Dates: start: 20211111, end: 20211111

REACTIONS (3)
  - Pneumonia [Recovered/Resolved]
  - Dyspnoea [Recovered/Resolved]
  - Sputum increased [Recovered/Resolved]

NARRATIVE: CASE EVENT DATE: 20220122
